FAERS Safety Report 5481944-9 (Version None)
Quarter: 2007Q4

REPORT INFORMATION
  Report Type: 
  Country: None (occurrence: None)
  Receive Date: 20071005
  Receipt Date: 20071002
  Transmission Date: 20080405
  Serious: Yes (Death, Hospitalization)
  Sender: FDA-Public Use
  Company Number: 163-20785-07081678

PATIENT
  Age: 54 Year
  Sex: Female

DRUGS (1)
  1. THALOMID [Suspect]
     Indication: MYELOFIBROSIS
     Dosage: 50 MG, 1 IN 1 D, ORAL
     Route: 048
     Dates: start: 20070701, end: 20070801

REACTIONS (5)
  - DISEASE PROGRESSION [None]
  - MALAISE [None]
  - MYELOFIBROSIS [None]
  - POLYCYTHAEMIA [None]
  - RESPIRATORY ARREST [None]
